FAERS Safety Report 5667566-5 (Version None)
Quarter: 2008Q1

REPORT INFORMATION
  Report Type: 
  Country: None (occurrence: None)
  Receive Date: 20080315
  Receipt Date: 20080125
  Transmission Date: 20080703
  Serious: No
  Sender: FDA-Public Use
  Company Number: US-ABBOTT-08P-163-0435507-00

PATIENT
  Sex: Female
  Weight: 47.67 kg

DRUGS (5)
  1. HUMIRA [Suspect]
     Indication: CROHN'S DISEASE
     Route: 058
     Dates: start: 20070901, end: 20070901
  2. HUMIRA [Suspect]
     Route: 058
  3. CITALOPRAM HYDROBROMIDE [Concomitant]
     Indication: BIPOLAR DISORDER
     Route: 048
  4. ACOPHEX [Concomitant]
     Indication: CROHN'S DISEASE
     Route: 048
  5. BUDESONIDE [Concomitant]
     Indication: CROHN'S DISEASE
     Route: 048

REACTIONS (3)
  - ABDOMINAL PAIN [None]
  - ACCIDENTAL EXPOSURE [None]
  - INJECTION SITE PAIN [None]
